FAERS Safety Report 8231165-1 (Version None)
Quarter: 2012Q1

REPORT INFORMATION
  Report Type: 
  Country: None (occurrence: None)
  Receive Date: 20120323
  Receipt Date: 20120323
  Transmission Date: 20120608
  Serious: Yes (Hospitalization)
  Sender: FDA-Public Use
  Company Number: None

PATIENT
  Sex: Female
  Weight: 62.6 kg

DRUGS (4)
  1. ZOSYN [Concomitant]
  2. DAPTOMYCIN [Concomitant]
  3. VANCOMYCIN [Suspect]
     Dosage: 1750MG
     Route: 042
  4. CEFTRIAXONE [Concomitant]

REACTIONS (9)
  - PHARYNGEAL OEDEMA [None]
  - ODYNOPHAGIA [None]
  - PRURITUS [None]
  - SWOLLEN TONGUE [None]
  - LOCAL SWELLING [None]
  - THERMAL BURN [None]
  - URTICARIA [None]
  - INFUSION RELATED REACTION [None]
  - LIP SWELLING [None]
